FAERS Safety Report 7569381-4 (Version None)
Quarter: 2011Q2

REPORT INFORMATION
  Report Type: 
  Country: None (occurrence: None)
  Receive Date: 20110623
  Receipt Date: 20110613
  Transmission Date: 20111010
  Serious: Yes (Life-Threatening, Hospitalization, Disabling, Other)
  Sender: FDA-Public Use
  Company Number: US-MERCK-1106USA01581

PATIENT
  Age: 75 Year
  Sex: Male

DRUGS (2)
  1. ZOCOR [Suspect]
     Dosage: STENT PLACEMENT
     Route: 048
  2. ZOCOR [Suspect]
     Route: 048

REACTIONS (2)
  - RHABDOMYOLYSIS [None]
  - ANGIOPATHY [None]
